FAERS Safety Report 25812322 (Version 2)
Quarter: 2025Q4

REPORT INFORMATION
  Report Type: Report from Study
  Country: US (occurrence: US)
  Receive Date: 20250917
  Receipt Date: 20251024
  Transmission Date: 20260117
  Serious: Yes (Other)
  Sender: ELI LILLY AND COMPANY
  Company Number: US-ELI_LILLY_AND_COMPANY-US202509006701

PATIENT
  Age: 82 Year
  Sex: Female
  Weight: 53.515 kg

DRUGS (2)
  1. KISUNLA [Suspect]
     Active Substance: DONANEMAB-AZBT
     Indication: Dementia Alzheimer^s type
     Dosage: UNK, MONTHLY (1/M)
     Route: 065
  2. QUETIAPINE [Concomitant]
     Active Substance: QUETIAPINE
     Indication: Product used for unknown indication
     Dosage: 25 MG, DAILY
     Route: 065

REACTIONS (3)
  - Hallucination, visual [Recovered/Resolved]
  - Agitation [Recovered/Resolved]
  - Anger [Recovered/Resolved]
